FAERS Safety Report 9253841 (Version 3)
Quarter: 2014Q1

REPORT INFORMATION
  Report Type: Spontaneous
  Country: US (occurrence: US)
  Receive Date: 20130425
  Receipt Date: 20140102
  Transmission Date: 20141002
  Serious: Yes (Death, Other)
  Sender: FDA-Public Use
  Company Number: US-ASTRAZENECA-2013SE27329

PATIENT
  Age: 70 Year
  Sex: Male

DRUGS (1)
  1. NEXIUM [Suspect]
     Route: 048

REACTIONS (8)
  - Hypertension [Fatal]
  - Arteriosclerosis [Fatal]
  - Dyslipidaemia [Unknown]
  - Osteoporosis [Unknown]
  - Spondylolysis [Unknown]
  - Spondylolisthesis [Unknown]
  - Bone disorder [Unknown]
  - Multiple fractures [Unknown]
